FAERS Safety Report 4322789-2 (Version None)
Quarter: 2004Q1

REPORT INFORMATION
  Report Type: 
  Country: None (occurrence: None)
  Receive Date: 20040324
  Receipt Date: 20040316
  Transmission Date: 20041129
  Serious: Yes (Death)
  Sender: FDA-Public Use
  Company Number: JP-ROCHE-361786

PATIENT
  Age: 58 Year
  Sex: Male

DRUGS (10)
  1. MIDAZOLAM HCL [Suspect]
     Indication: DRUG USE FOR UNKNOWN INDICATION
     Route: 042
  2. ATROPINE SULPHATE [Concomitant]
     Route: 030
  3. FAMOTIDINE [Concomitant]
     Route: 030
  4. FENTANYL [Concomitant]
     Route: 042
  5. VECURONIUM BROMIDE [Concomitant]
     Route: 042
  6. ISOFLURANE [Concomitant]
     Route: 042
  7. PANCURONIUM [Concomitant]
  8. DOPAMINE HCL [Concomitant]
  9. ALPROSTADIL [Concomitant]
     Route: 041
  10. LIDOCAINE [Concomitant]

REACTIONS (7)
  - BLOOD PRESSURE DECREASED [None]
  - CARDIAC FAILURE [None]
  - CAROTID ARTERY THROMBOSIS [None]
  - CEREBRAL ARTERY EMBOLISM [None]
  - VENTRICULAR EXTRASYSTOLES [None]
  - VENTRICULAR FIBRILLATION [None]
  - VENTRICULAR TACHYCARDIA [None]
